FAERS Safety Report 19868992 (Version 1)
Quarter: 2021Q3

REPORT INFORMATION
  Report Type: Spontaneous
  Country: IT (occurrence: IT)
  Receive Date: 20210922
  Receipt Date: 20210922
  Transmission Date: 20211014
  Serious: Yes (Hospitalization)
  Sender: FDA-Public Use
  Company Number: IT-MYLANLABS-2021M1063565

PATIENT
  Age: 75 Year
  Sex: Female
  Weight: 40 kg

DRUGS (1)
  1. PACLITAXEL. [Suspect]
     Active Substance: PACLITAXEL
     Indication: GASTRIC CANCER
     Dosage: 215 MILLIGRAM, CYCLE
     Route: 042
     Dates: start: 20210406

REACTIONS (5)
  - Tachycardia [Recovered/Resolved]
  - Lip swelling [Recovered/Resolved]
  - Stupor [Recovered/Resolved]
  - Dizziness [Recovered/Resolved]
  - Confusional state [Recovered/Resolved]

NARRATIVE: CASE EVENT DATE: 20210406
